FAERS Safety Report 5335290-4 (Version None)
Quarter: 2007Q2

REPORT INFORMATION
  Report Type: 
  Country: None (occurrence: None)
  Receive Date: 20070525
  Receipt Date: 20070515
  Transmission Date: 20071010
  Serious: Yes (Hospitalization)
  Sender: FDA-Public Use
  Company Number: JP-PFIZER INC-2007031067

PATIENT
  Sex: Female
  Weight: 48 kg

DRUGS (3)
  1. AZULFIDINE EN-TABS [Suspect]
     Indication: RHEUMATOID ARTHRITIS
     Dosage: DAILY DOSE:500MG
     Route: 048
     Dates: start: 19890101, end: 20060106
  2. RHEUMATREX [Suspect]
     Indication: RHEUMATOID ARTHRITIS
     Dosage: DAILY DOSE:8MG
     Route: 048
     Dates: start: 20000101, end: 20060106
  3. PREDNISOLONE [Concomitant]
     Route: 048
     Dates: start: 19890101

REACTIONS (1)
  - PLASMACYTOSIS [None]
